FAERS Safety Report 10574394 (Version 2)
Quarter: 2014Q4

REPORT INFORMATION
  Report Type: Report from Study
  Country: US (occurrence: US)
  Receive Date: 20141110
  Receipt Date: 20141112
  Transmission Date: 20150529
  Serious: Yes (Death)
  Sender: FDA-Public Use
  Company Number: US-JNJFOC-20141104664

PATIENT
  Age: 76 Year
  Sex: Female
  Weight: 51 kg

DRUGS (7)
  1. IMBRUVICA [Suspect]
     Active Substance: IBRUTINIB
     Indication: PRODUCT USED FOR UNKNOWN INDICATION
     Route: 048
     Dates: start: 20140502
  2. CARBIDOPA. [Concomitant]
     Active Substance: CARBIDOPA
  3. MIRTAZAPINE. [Concomitant]
     Active Substance: MIRTAZAPINE
  4. LORATADINE. [Concomitant]
     Active Substance: LORATADINE
  5. CINNAMON. [Concomitant]
     Active Substance: CINNAMON
     Indication: SUPPLEMENTATION THERAPY
  6. LEVOTHYROXINE [Concomitant]
     Active Substance: LEVOTHYROXINE
  7. OXYBUTYNIN [Concomitant]
     Active Substance: OXYBUTYNIN

REACTIONS (3)
  - Hip fracture [Unknown]
  - Fall [Unknown]
  - Pneumonia [Fatal]

NARRATIVE: CASE EVENT DATE: 20141014
